FAERS Safety Report 5243666-9 (Version None)
Quarter: 2007Q1

REPORT INFORMATION
  Report Type: 
  Country: None (occurrence: None)
  Receive Date: 20070222
  Receipt Date: 20070213
  Transmission Date: 20070707
  Serious: Yes (Death, Life-Threatening)
  Sender: FDA-Public Use
  Company Number: JP-JNJFOC-20070107288

PATIENT
  Sex: Male

DRUGS (13)
  1. ITRACONAZOLE [Suspect]
     Route: 041
  2. ITRACONAZOLE [Suspect]
     Indication: FUNGAL PERITONITIS
     Route: 041
  3. FOSFLUCONAZOLE [Concomitant]
     Route: 065
  4. FUTHAN [Concomitant]
     Indication: PANCREATITIS ACUTE
     Route: 065
  5. FUTHAN [Concomitant]
     Indication: DISSEMINATED INTRAVASCULAR COAGULATION
     Route: 065
  6. FOSMICIN-S [Concomitant]
     Indication: PNEUMONIA
     Route: 041
  7. FRESH FROZEN PLASMA [Concomitant]
     Route: 065
  8. FRESH FROZEN PLASMA [Concomitant]
     Indication: DISSEMINATED INTRAVASCULAR COAGULATION
     Route: 065
  9. ALBUMIN (HUMAN) [Concomitant]
     Indication: DISSEMINATED INTRAVASCULAR COAGULATION
     Route: 065
  10. PASIL [Concomitant]
     Indication: PNEUMONIA
     Route: 065
  11. VENOGLOBULIN [Concomitant]
     Indication: DISSEMINATED INTRAVASCULAR COAGULATION
     Route: 065
  12. DOBUTREX [Concomitant]
     Indication: DISSEMINATED INTRAVASCULAR COAGULATION
     Route: 065
  13. ELASPOL [Concomitant]
     Indication: PNEUMONIA
     Route: 065

REACTIONS (2)
  - PNEUMONIA [None]
  - RENAL FAILURE ACUTE [None]
